FAERS Safety Report 10928139 (Version 1)
Quarter: 2015Q1

REPORT INFORMATION
  Report Type: Spontaneous
  Country: FR (occurrence: FR)
  Receive Date: 20150319
  Receipt Date: 20150319
  Transmission Date: 20150721
  Serious: Yes (Hospitalization)
  Sender: FDA-Public Use
  Company Number: FR-ROCHE-1551813

PATIENT
  Age: 67 Year
  Sex: Male

DRUGS (15)
  1. IPRATROPIUM [Concomitant]
     Active Substance: IPRATROPIUM
     Route: 065
  2. CYMEVENE [Interacting]
     Active Substance: GANCICLOVIR
     Route: 041
     Dates: start: 20141017, end: 20141121
  3. PREDNISONE. [Concomitant]
     Active Substance: PREDNISONE
  4. FUROSEMIDE. [Concomitant]
     Active Substance: FUROSEMIDE
     Route: 065
  5. SERESTA [Concomitant]
     Active Substance: OXAZEPAM
     Route: 065
  6. REPAGLINIDE. [Concomitant]
     Active Substance: REPAGLINIDE
     Route: 065
  7. CYMEVENE [Suspect]
     Active Substance: GANCICLOVIR
     Indication: LUNG DISORDER
     Route: 041
     Dates: start: 20141003, end: 20141013
  8. MABTHERA [Interacting]
     Active Substance: RITUXIMAB
     Indication: CRYOGLOBULINAEMIA
     Route: 042
     Dates: start: 20140904, end: 20140906
  9. TRIATEC (FRANCE) [Concomitant]
     Active Substance: RAMIPRIL
     Route: 065
  10. CORTANCYL [Suspect]
     Active Substance: PREDNISONE
     Indication: CRYOGLOBULINAEMIA
     Route: 048
     Dates: start: 20140815
  11. SOLU-MEDROL [Concomitant]
     Active Substance: METHYLPREDNISOLONE SODIUM SUCCINATE
  12. CYMEVENE [Interacting]
     Active Substance: GANCICLOVIR
     Route: 041
     Dates: start: 20141014, end: 20141016
  13. ATARAX [Concomitant]
     Active Substance: HYDROXYZINE\HYDROXYZINE HYDROCHLORIDE
     Route: 065
  14. SALBUTAMOL [Concomitant]
     Active Substance: ALBUTEROL
     Route: 065
  15. MABTHERA [Interacting]
     Active Substance: RITUXIMAB
     Route: 042
     Dates: start: 20140911, end: 20140926

REACTIONS (4)
  - Neutropenia [Recovered/Resolved]
  - Drug interaction [Unknown]
  - Lung disorder [Recovered/Resolved]
  - Thrombocytopenia [Recovered/Resolved]

NARRATIVE: CASE EVENT DATE: 20141016
